FAERS Safety Report 16979919 (Version 1)
Quarter: 2019Q4

REPORT INFORMATION
  Report Type: Spontaneous
  Country: JP (occurrence: JP)
  Receive Date: 20191031
  Receipt Date: 20191031
  Transmission Date: 20200122
  Serious: Yes (Other)
  Sender: FDA-Public Use
  Company Number: NVSC2019JP019813

PATIENT
  Age: 62 Year
  Sex: Female

DRUGS (2)
  1. DOCETAXEL. [Suspect]
     Active Substance: DOCETAXEL
     Indication: SQUAMOUS CELL CARCINOMA
     Dosage: 60 MG/M2, CYCLIC
     Route: 065
  2. RAMUCIRUMAB [Suspect]
     Active Substance: RAMUCIRUMAB
     Indication: SQUAMOUS CELL CARCINOMA
     Dosage: 10 MG/KG, CYCLIC
     Route: 065

REACTIONS (5)
  - Fatigue [Unknown]
  - Therapeutic response decreased [Unknown]
  - Anaemia [Unknown]
  - Haemorrhage intracranial [Unknown]
  - Diarrhoea [Unknown]
